FAERS Safety Report 12493687 (Version 4)
Quarter: 2016Q3

REPORT INFORMATION
  Report Type: Spontaneous
  Country: ES (occurrence: ES)
  Receive Date: 20160623
  Receipt Date: 20160714
  Transmission Date: 20161109
  Serious: Yes (Other)
  Sender: FDA-Public Use
  Company Number: ES-ABBVIE-16P-144-1659636-00

PATIENT
  Age: 32 Year
  Sex: Male

DRUGS (2)
  1. ESOMEPRAZOLE [Suspect]
     Active Substance: ESOMEPRAZOLE
     Indication: PRODUCT USED FOR UNKNOWN INDICATION
     Route: 048
     Dates: start: 201603
  2. SECALIP [Suspect]
     Active Substance: FENOFIBRATE
     Indication: HYPERTRIGLYCERIDAEMIA
     Route: 048
     Dates: start: 201603, end: 201603

REACTIONS (9)
  - Blood lactate dehydrogenase increased [Recovered/Resolved]
  - Localised oedema [Recovered/Resolved]
  - Leukocytosis [Recovered/Resolved]
  - Skin reaction [Recovered/Resolved]
  - Lung infiltration [Recovered/Resolved]
  - Cough [Recovered/Resolved]
  - Pyrexia [Recovered/Resolved]
  - Eyelid oedema [Recovered/Resolved]
  - Coagulopathy [Recovered/Resolved]

NARRATIVE: CASE EVENT DATE: 201603
